FAERS Safety Report 7259094 (Version 2)
Quarter: 2015Q4

REPORT INFORMATION
  Report Type: Spontaneous
  Country: ZA (occurrence: ZA)
  Receive Date: 20100128
  Receipt Date: 20151129
  Transmission Date: 20160305
  Serious: Yes (Death, Congenital Anomaly, Other)
  Sender: FDA-Public Use
  Company Number: ZA-BRISTOL-MYERS SQUIBB COMPANY-14948533

PATIENT
  Age: 1 Day

DRUGS (1)
  1. EFAVIRENZ [Suspect]
     Active Substance: EFAVIRENZ
     Indication: PRODUCT USED FOR UNKNOWN INDICATION
     Dosage: UNK
     Route: 064

REACTIONS (5)
  - Pulmonary valve stenosis congenital [Unknown]
  - Asphyxia [Unknown]
  - Cardiac failure congestive [Unknown]
  - Foetal exposure during pregnancy [Unknown]
  - Death [Fatal]
